FAERS Safety Report 5088102-0 (Version None)
Quarter: 2006Q3

REPORT INFORMATION
  Report Type: 
  Country: None (occurrence: None)
  Receive Date: 20060823
  Receipt Date: 20060823
  Transmission Date: 20061208
  Serious: Yes (Hospitalization)
  Sender: FDA-Public Use
  Company Number: None

PATIENT
  Age: 63 Year
  Sex: Male
  Weight: 108.4097 kg

DRUGS (1)
  1. ROSIGLITAZONE [Suspect]
     Indication: DIABETES MELLITUS
     Dosage: 4 MG PO QD
     Route: 048
     Dates: start: 20060601, end: 20060711

REACTIONS (6)
  - ABASIA [None]
  - DYSPNOEA [None]
  - HYPERVOLAEMIA [None]
  - OEDEMA PERIPHERAL [None]
  - ORTHOPNOEA [None]
  - WEIGHT INCREASED [None]
